FAERS Safety Report 5692297-5 (Version None)
Quarter: 2008Q2

REPORT INFORMATION
  Report Type: 
  Country: None (occurrence: None)
  Receive Date: 20080402
  Receipt Date: 20080327
  Transmission Date: 20081010
  Serious: Yes (Other)
  Sender: FDA-Public Use
  Company Number: PFIZER INC-2008027648

PATIENT
  Sex: Female
  Weight: 61.2 kg

DRUGS (1)
  1. GEODON [Suspect]
     Indication: AUTISM

REACTIONS (5)
  - AGGRESSION [None]
  - POVERTY OF SPEECH [None]
  - SLEEP DISORDER [None]
  - SOMNOLENCE [None]
  - WEIGHT INCREASED [None]
